FAERS Safety Report 5383084-6 (Version None)
Quarter: 2007Q3

REPORT INFORMATION
  Report Type: 
  Country: None (occurrence: None)
  Receive Date: 20070710
  Receipt Date: 20070706
  Transmission Date: 20080115
  Serious: Yes (Other)
  Sender: FDA-Public Use
  Company Number: CA-BAYER-200513682GDS

PATIENT
  Age: 42 Year
  Sex: Female
  Weight: 79 kg

DRUGS (6)
  1. AVELOX [Suspect]
     Indication: UPPER RESPIRATORY TRACT INFECTION
     Dosage: TOTAL DAILY DOSE: 400 MG  UNIT DOSE: 400 MG
     Route: 048
     Dates: start: 20050706, end: 20050713
  2. SINGULAIR [Concomitant]
     Indication: DRUG USE FOR UNKNOWN INDICATION
     Route: 048
  3. ADVAIR 250 DISKUS [Concomitant]
     Indication: DRUG USE FOR UNKNOWN INDICATION
     Route: 055
  4. VENTOLIN 200 DISKUS [Concomitant]
     Indication: DRUG USE FOR UNKNOWN INDICATION
     Route: 055
  5. EMECORT [Concomitant]
     Indication: DRUG USE FOR UNKNOWN INDICATION
     Route: 061
  6. NASONEX [Concomitant]
     Indication: DRUG USE FOR UNKNOWN INDICATION
     Route: 045

REACTIONS (4)
  - PHOTOSENSITIVITY REACTION [None]
  - PRURITUS [None]
  - RASH MACULAR [None]
  - URTICARIA [None]
